FAERS Safety Report 18937577 (Version 1)
Quarter: 2021Q1

REPORT INFORMATION
  Report Type: Spontaneous
  Country: US (occurrence: US)
  Receive Date: 20210224
  Receipt Date: 20210224
  Transmission Date: 20210420
  Serious: Yes (Hospitalization)
  Sender: FDA-Public Use
  Company Number: None

PATIENT
  Age: 72 Year
  Sex: Male

DRUGS (1)
  1. ZYTIGA [Suspect]
     Active Substance: ABIRATERONE ACETATE
     Route: 048
     Dates: start: 201805

REACTIONS (5)
  - Chest pain [None]
  - Dyspnoea [None]
  - Hypertension [None]
  - Oedema [None]
  - Therapy interrupted [None]

NARRATIVE: CASE EVENT DATE: 20210223
